FAERS Safety Report 8158941-8 (Version None)
Quarter: 2012Q1

REPORT INFORMATION
  Report Type: 
  Country: None (occurrence: None)
  Receive Date: 20120217
  Receipt Date: 20120206
  Transmission Date: 20120608
  Serious: Yes (Other)
  Sender: FDA-Public Use
  Company Number: 1188454

PATIENT
  Age: 60 Year
  Sex: Female

DRUGS (2)
  1. (LANSOPRAZOLO) [Concomitant]
  2. PACLITAXEL [Suspect]
     Indication: BREAST CANCER
     Dosage: 120 MG MILLIGRAM(S), INTRAVENOUS
     Route: 042
     Dates: start: 20120127, end: 20120127

REACTIONS (5)
  - SYNCOPE [None]
  - OROPHARYNGEAL PAIN [None]
  - PRESYNCOPE [None]
  - DYSAESTHESIA [None]
  - HEADACHE [None]
